FAERS Safety Report 5486938-5 (Version None)
Quarter: 2007Q4

REPORT INFORMATION
  Report Type: 
  Country: None (occurrence: None)
  Receive Date: 20071016
  Receipt Date: 20071004
  Transmission Date: 20080405
  Serious: Yes (Other)
  Sender: FDA-Public Use
  Company Number: BE-BRISTOL-MYERS SQUIBB COMPANY-13934500

PATIENT
  Age: 74 Year
  Sex: Female

DRUGS (2)
  1. ERBITUX [Suspect]
     Indication: COLON CANCER
     Route: 042
     Dates: start: 20070719
  2. CAMPTOSAR [Suspect]
     Indication: COLON CANCER
     Route: 042
     Dates: start: 20070719

REACTIONS (3)
  - ERYTHEMA [None]
  - RASH PAPULAR [None]
  - RASH PUSTULAR [None]
